FAERS Safety Report 21326990 (Version 1)
Quarter: 2022Q3

REPORT INFORMATION
  Report Type: Spontaneous
  Country: JP (occurrence: JP)
  Receive Date: 20220913
  Receipt Date: 20220913
  Transmission Date: 20221026
  Serious: Yes (Other)
  Sender: FDA-Public Use
  Company Number: JP-BAXTER-2022BAX018343

PATIENT
  Age: 77 Year
  Sex: Male
  Weight: 76 kg

DRUGS (4)
  1. SUPRANE [Suspect]
     Active Substance: DESFLURANE
     Indication: Induction of anaesthesia
     Dosage: AT HIGHER DOSES FOR A LONG TIME
  2. REMIFENTANIL [Concomitant]
     Active Substance: REMIFENTANIL
     Indication: Induction of anaesthesia
     Dosage: 0.2 ?G/KG/MIN
     Route: 042
  3. THIOPENTAL [Concomitant]
     Active Substance: THIOPENTAL
     Indication: Induction of anaesthesia
     Dosage: 300 MG
     Route: 042
  4. ROCURONIUM [Concomitant]
     Active Substance: ROCURONIUM BROMIDE
     Indication: Induction of anaesthesia
     Dosage: 70 MG
     Route: 042

REACTIONS (4)
  - Stress cardiomyopathy [Recovering/Resolving]
  - Blood pressure systolic increased [Recovering/Resolving]
  - Electrocardiogram ST segment elevation [Recovering/Resolving]
  - Pulse abnormal [Recovering/Resolving]
